FAERS Safety Report 20055902 (Version 13)
Quarter: 2022Q4

REPORT INFORMATION
  Report Type: Report from Study
  Country: US (occurrence: None)
  Receive Date: 20211111
  Receipt Date: 20221219
  Transmission Date: 20230112
  Serious: Yes (Other)
  Sender: FDA-Public Use
  Company Number: US-ROCHE-2632231

PATIENT
  Age: 74 Year
  Sex: Female
  Weight: 73 kg

DRUGS (58)
  1. RANIBIZUMAB [Suspect]
     Active Substance: RANIBIZUMAB
     Indication: Diabetic retinal oedema
     Dosage: DOSE: 100 MG/ML FREQUENCY: EVERY 4 WEEKS?DATE OF MOST RECENT DOSE OF STUDY EYE RANIBIZUMAB (10 MG/ML
     Route: 050
     Dates: start: 20200217
  2. RANIBIZUMAB [Suspect]
     Active Substance: RANIBIZUMAB
  3. RANIBIZUMAB [Suspect]
     Active Substance: RANIBIZUMAB
  4. RANIBIZUMAB [Suspect]
     Active Substance: RANIBIZUMAB
  5. RANIBIZUMAB [Suspect]
     Active Substance: RANIBIZUMAB
  6. RANIBIZUMAB [Concomitant]
     Active Substance: RANIBIZUMAB
     Dosage: DATE OF MOST RECENT DOSE OF SPONSOR SUPPLIED FELLOW EYE RANIBIZUMAB (6 MG/ML) FOR INTRAVITREAL INJEC
     Route: 050
     Dates: start: 20200217
  7. METFORMIN [Concomitant]
     Active Substance: METFORMIN HYDROCHLORIDE
     Indication: Type 2 diabetes mellitus
     Route: 048
     Dates: start: 2000, end: 20220823
  8. ATORVASTATIN [Concomitant]
     Active Substance: ATORVASTATIN
     Indication: Hypercholesterolaemia
     Dates: start: 2015
  9. AMLODIPINE [Concomitant]
     Active Substance: AMLODIPINE BESYLATE
     Indication: Hypertension
     Dates: start: 2015, end: 20201208
  10. AMLODIPINE [Concomitant]
     Active Substance: AMLODIPINE BESYLATE
     Dates: start: 20220506
  11. GABAPENTIN [Concomitant]
     Active Substance: GABAPENTIN
     Indication: Neuropathy peripheral
     Dates: start: 2015, end: 20220505
  12. GABAPENTIN [Concomitant]
     Active Substance: GABAPENTIN
     Dates: start: 20220506
  13. GLIMEPIRIDE [Concomitant]
     Active Substance: GLIMEPIRIDE
     Indication: Type 2 diabetes mellitus
     Dates: start: 2011
  14. VITAMIN C [Concomitant]
     Active Substance: ASCORBIC ACID
     Dates: start: 20200406, end: 20210601
  15. VITAMIN C [Concomitant]
     Active Substance: ASCORBIC ACID
     Dates: start: 20210602
  16. FERROUS SULFATE [Concomitant]
     Active Substance: FERROUS SULFATE
     Dates: start: 20200507
  17. PROGESTERONE [Concomitant]
     Active Substance: PROGESTERONE
     Indication: Osteoarthritis
     Dates: start: 20200628, end: 20200705
  18. TOBRADEX [Concomitant]
     Active Substance: DEXAMETHASONE\TOBRAMYCIN
     Indication: Lacrimation increased
     Dates: start: 20200616, end: 20200625
  19. TOBRADEX [Concomitant]
     Active Substance: DEXAMETHASONE\TOBRAMYCIN
     Dates: start: 20200701, end: 20200705
  20. TOBRADEX [Concomitant]
     Active Substance: DEXAMETHASONE\TOBRAMYCIN
     Dates: start: 20200608, end: 20200608
  21. TOBRADEX [Concomitant]
     Active Substance: DEXAMETHASONE\TOBRAMYCIN
     Dates: start: 20200706, end: 20200720
  22. DECADRON [Concomitant]
     Active Substance: DEXAMETHASONE
     Indication: Prophylaxis
     Dates: start: 20200606, end: 20200609
  23. CEFAZOLIN [Concomitant]
     Active Substance: CEFAZOLIN
     Indication: Infection prophylaxis
     Dates: start: 20200609, end: 20200609
  24. VITAMIN B12 [Concomitant]
     Active Substance: CYANOCOBALAMIN
     Indication: Vitamin B12 deficiency
     Dates: start: 20200507, end: 20200604
  25. VITAMIN B12 [Concomitant]
     Active Substance: CYANOCOBALAMIN
     Dosage: GENERAL HEALTH
     Dates: start: 20210513
  26. NAPROXEN [Concomitant]
     Active Substance: NAPROXEN
     Indication: Osteoarthritis
     Dates: start: 20200504, end: 20200601
  27. NAPROXEN [Concomitant]
     Active Substance: NAPROXEN
     Dates: start: 20200616
  28. NITROFURANTOIN MONOHYDRATE MACROCRYSTALS [Concomitant]
     Active Substance: NITROFURANTOIN\NITROFURANTOIN MONOHYDRATE
     Indication: Urinary tract infection
     Dates: start: 20201021, end: 20201027
  29. HYDROCHLOROTHIAZIDE [Concomitant]
     Active Substance: HYDROCHLOROTHIAZIDE
     Indication: Oedema peripheral
     Dates: start: 20201008, end: 20201106
  30. CIPROFLOXACIN [Concomitant]
     Active Substance: CIPROFLOXACIN
     Indication: Urinary tract infection
     Dates: start: 20201130, end: 20201204
  31. CIPROFLOXACIN [Concomitant]
     Active Substance: CIPROFLOXACIN
     Dates: start: 20211221, end: 20211231
  32. CIPROFLOXACIN [Concomitant]
     Active Substance: CIPROFLOXACIN
     Dates: start: 20210510, end: 20210513
  33. CIPROFLOXACIN [Concomitant]
     Active Substance: CIPROFLOXACIN
     Dates: start: 20211027, end: 20211030
  34. CIPROFLOXACIN [Concomitant]
     Active Substance: CIPROFLOXACIN
     Dates: start: 20220413, end: 20220416
  35. CIPROFLOXACIN [Concomitant]
     Active Substance: CIPROFLOXACIN
     Dates: start: 20220926, end: 20220929
  36. BENAZEPRIL AND HYDROCHLOROTHIAZIDE [Concomitant]
     Active Substance: BENAZEPRIL HYDROCHLORIDE\HYDROCHLOROTHIAZIDE
     Indication: Hypertension
     Dates: start: 20201209, end: 20210513
  37. AMILORIDE [Concomitant]
     Active Substance: AMILORIDE
     Indication: Hypertension
     Dates: start: 20201209, end: 20210513
  38. FLAXSEED [Concomitant]
     Active Substance: FLAX SEED
     Dates: start: 202012
  39. CALCIUM [Concomitant]
     Active Substance: CALCIUM
     Dates: start: 20200507
  40. MELOXICAM [Concomitant]
     Active Substance: MELOXICAM
     Indication: Osteoarthritis
     Dates: start: 20210126, end: 20210506
  41. METHYLPREDNISOLONE [Concomitant]
     Active Substance: METHYLPREDNISOLONE
     Indication: Osteoarthritis
     Dates: start: 20210303, end: 20210308
  42. FERROUS SULFATE [Concomitant]
     Active Substance: FERROUS SULFATE
     Indication: Renal failure
     Dates: start: 20210425, end: 20220505
  43. FERROUS SULFATE [Concomitant]
     Active Substance: FERROUS SULFATE
     Dates: start: 20210824, end: 20210921
  44. IRON [Concomitant]
     Active Substance: IRON
     Indication: Acute kidney injury
     Route: 065
     Dates: start: 20210425, end: 20210428
  45. NITROFURANTOIN [Concomitant]
     Active Substance: NITROFURANTOIN
     Indication: Urinary tract infection
     Dates: start: 20210401, end: 20210406
  46. CALCIUM\CHOLECALCIFEROL [Concomitant]
     Active Substance: CALCIUM\CHOLECALCIFEROL
     Dates: start: 20200605, end: 20201201
  47. SYSTANE (HYPROMELLOSE 2910 (4000 MPA.S)) [Concomitant]
     Active Substance: HYPROMELLOSE 2910 (4000 MPA.S)
     Indication: Dry eye
     Dates: start: 2018
  48. METOPROLOL [Concomitant]
     Active Substance: METOPROLOL
     Indication: Hypertension
     Dates: start: 20210513
  49. OMEPRAZOLE [Concomitant]
     Active Substance: OMEPRAZOLE
     Indication: Gastrooesophageal reflux disease
     Dates: start: 20211103, end: 20220216
  50. FAMOTIDINE [Concomitant]
     Active Substance: FAMOTIDINE
     Dates: start: 20211103, end: 20220216
  51. MUPIROCIN [Concomitant]
     Active Substance: MUPIROCIN
     Indication: Gastrooesophageal reflux disease
     Dates: start: 20211103, end: 20211109
  52. OXYCODONE HYDROCHLORIDE\OXYCODONE TEREPHTHALATE [Concomitant]
     Active Substance: OXYCODONE HYDROCHLORIDE\OXYCODONE TEREPHTHALATE
     Indication: Gastrooesophageal reflux disease
     Dates: start: 20211110
  53. FIBERCON [Concomitant]
     Active Substance: CALCIUM POLYCARBOPHIL
     Dates: start: 20211212, end: 20220310
  54. ESTRADIOL [Concomitant]
     Active Substance: ESTRADIOL
     Indication: Vulvovaginal discomfort
     Dates: start: 20220125
  55. NEOCELL SUPERCOLLAGEN+C [Concomitant]
     Dates: start: 202012, end: 202103
  56. SULFAMETHOXAZOLE [Concomitant]
     Active Substance: SULFAMETHOXAZOLE
     Indication: Urinary tract infection
     Dates: start: 20220218, end: 20220221
  57. MYCOCIDE NS [Concomitant]
     Indication: Onychomycosis
     Dates: start: 2019
  58. ASPIRIN [Concomitant]
     Active Substance: ASPIRIN
     Indication: Osteoarthritis
     Dates: start: 20221206

REACTIONS (2)
  - Conjunctival erosion [Not Recovered/Not Resolved]
  - Conjunctival bleb [Recovered/Resolved]

NARRATIVE: CASE EVENT DATE: 20200625
